FAERS Safety Report 6834862-5 (Version None)
Quarter: 2010Q3

REPORT INFORMATION
  Report Type: 
  Country: None (occurrence: None)
  Receive Date: 20100712
  Receipt Date: 20070411
  Transmission Date: 20110219
  Serious: No
  Sender: FDA-Public Use
  Company Number: US-PFIZER INC-2007028889

PATIENT
  Sex: Male
  Weight: 81.65 kg

DRUGS (5)
  1. CHANTIX [Suspect]
     Indication: SMOKING CESSATION THERAPY
     Dates: start: 20070219
  2. ALL OTHER THERAPEUTIC PRODUCTS [Concomitant]
  3. CENTRUM [Concomitant]
  4. GLUCOSAMINE [Concomitant]
  5. CHONDROITIN SULFATE [Concomitant]

REACTIONS (1)
  - DYSPEPSIA [None]
